FAERS Safety Report 6829642-0 (Version None)
Quarter: 2010Q3

REPORT INFORMATION
  Report Type: 
  Country: None (occurrence: None)
  Receive Date: 20100709
  Receipt Date: 20070511
  Transmission Date: 20110219
  Serious: No
  Sender: FDA-Public Use
  Company Number: US-PFIZER INC-2007017569

PATIENT
  Sex: Female
  Weight: 80.29 kg

DRUGS (8)
  1. CHANTIX [Suspect]
     Indication: SMOKING CESSATION THERAPY
     Route: 048
     Dates: start: 20070101
  2. PRILOSEC [Concomitant]
  3. ALBUTEROL [Concomitant]
  4. AZMACORT [Concomitant]
  5. ATROVENT [Concomitant]
  6. FLEXERIL [Concomitant]
  7. DARVOCET [Concomitant]
  8. XANAX [Concomitant]

REACTIONS (4)
  - GASTROOESOPHAGEAL REFLUX DISEASE [None]
  - NAUSEA [None]
  - NERVOUSNESS [None]
  - TREMOR [None]
